FAERS Safety Report 23246923 (Version 2)
Quarter: 2023Q4

REPORT INFORMATION
  Report Type: Report from Study
  Country: CN (occurrence: CN)
  Receive Date: 20231130
  Receipt Date: 20231208
  Transmission Date: 20240110
  Serious: Yes (Hospitalization)
  Sender: FDA-Public Use
  Company Number: CN-INCYTE CORPORATION-2023IN009557

PATIENT

DRUGS (5)
  1. RETIFANLIMAB [Suspect]
     Active Substance: RETIFANLIMAB
     Indication: Non-small cell lung cancer
     Dosage: 375 MILLIGRAM Q3W
     Route: 042
     Dates: start: 20210809
  2. PEMETREXED [Suspect]
     Active Substance: PEMETREXED
     Indication: Non-small cell lung cancer
     Dosage: 500 MILLIGRAM/SQ. METER
     Route: 042
     Dates: start: 20210809, end: 20210809
  3. PEMETREXED [Suspect]
     Active Substance: PEMETREXED
     Dosage: 375 MILLIGRAM/SQ. METER
     Route: 042
     Dates: start: 20211116, end: 20211116
  4. CARBOPLATIN [Suspect]
     Active Substance: CARBOPLATIN
     Indication: Non-small cell lung cancer
     Dosage: AUC 5
     Route: 042
     Dates: start: 20210809, end: 20210809
  5. CARBOPLATIN [Suspect]
     Active Substance: CARBOPLATIN
     Dosage: AUC 3.75
     Route: 042
     Dates: start: 20211116, end: 20211116

REACTIONS (1)
  - Hepatic function abnormal [Recovered/Resolved]

NARRATIVE: CASE EVENT DATE: 20230914
